FAERS Safety Report 10560223 (Version 1)
Quarter: 2014Q4

REPORT INFORMATION
  Report Type: Report from Study
  Country: BR (occurrence: BR)
  Receive Date: 20141103
  Receipt Date: 20141103
  Transmission Date: 20150529
  Serious: Yes (Hospitalization, Other)
  Sender: FDA-Public Use
  Company Number: BR-ABBVIE-14P-020-1299588-00

PATIENT
  Age: 71 Year
  Sex: Female
  Weight: 56 kg

DRUGS (1)
  1. HUMIRA [Suspect]
     Active Substance: ADALIMUMAB
     Indication: RHEUMATOID ARTHRITIS
     Route: 058
     Dates: start: 2008

REACTIONS (18)
  - Injection site bruising [Recovered/Resolved]
  - Diabetes mellitus [Unknown]
  - Fall [Unknown]
  - Pain in extremity [Not Recovered/Not Resolved]
  - Urinary tract infection [Recovered/Resolved]
  - Pain in extremity [Not Recovered/Not Resolved]
  - Varicose vein [Unknown]
  - Joint range of motion decreased [Not Recovered/Not Resolved]
  - Osteoarthritis [Unknown]
  - Arthralgia [Not Recovered/Not Resolved]
  - Blood pressure inadequately controlled [Unknown]
  - Emotional disorder [Unknown]
  - Drug administered at inappropriate site [Unknown]
  - Pain [Recovered/Resolved]
  - Bone disorder [Unknown]
  - Musculoskeletal pain [Not Recovered/Not Resolved]
  - Musculoskeletal stiffness [Recovered/Resolved]
  - Upper limb fracture [Unknown]

NARRATIVE: CASE EVENT DATE: 2008
